FAERS Safety Report 26189565 (Version 1)
Quarter: 2025Q4

REPORT INFORMATION
  Report Type: Spontaneous
  Country: GB (occurrence: GB)
  Receive Date: 20251223
  Receipt Date: 20251223
  Transmission Date: 20260117
  Serious: Yes (Hospitalization, Disabling, Other)
  Sender: TEVA
  Company Number: None

PATIENT
  Age: 44 Year
  Sex: Male
  Weight: 94 kg

DRUGS (1)
  1. MONTELUKAST [Suspect]
     Active Substance: MONTELUKAST
     Indication: Asthma
     Route: 065
     Dates: start: 20180601, end: 20211101

REACTIONS (3)
  - Anxiety [Not Recovered/Not Resolved]
  - Medication error [Unknown]
  - Major depression [Recovered/Resolved with Sequelae]

NARRATIVE: CASE EVENT DATE: 20201101
